FAERS Safety Report 6852181-8 (Version None)
Quarter: 2010Q3

REPORT INFORMATION
  Report Type: 
  Country: None (occurrence: None)
  Receive Date: 20100717
  Receipt Date: 20071107
  Transmission Date: 20110219
  Serious: No
  Sender: FDA-Public Use
  Company Number: US-PFIZER INC-2007095456

PATIENT
  Sex: Female
  Weight: 53.6 kg

DRUGS (3)
  1. CHANTIX [Suspect]
     Indication: SMOKING CESSATION THERAPY
     Dates: start: 20071001
  2. VITAMINS [Concomitant]
  3. CALCIUM [Concomitant]

REACTIONS (5)
  - ABDOMINAL PAIN UPPER [None]
  - ENERGY INCREASED [None]
  - FATIGUE [None]
  - FLATULENCE [None]
  - SLEEP DISORDER [None]
